FAERS Safety Report 8259404-1 (Version None)
Quarter: 2012Q2

REPORT INFORMATION
  Report Type: 
  Country: None (occurrence: None)
  Receive Date: 20120404
  Receipt Date: 20120327
  Transmission Date: 20120825
  Serious: Yes (Other)
  Sender: FDA-Public Use
  Company Number: BR-BAYER-2012-030144

PATIENT
  Sex: Female
  Weight: 73 kg

DRUGS (2)
  1. YASMIN [Suspect]
     Indication: CONTRACEPTION
     Dosage: UNK
     Route: 048
     Dates: start: 20080101, end: 20120301
  2. YASMIN [Suspect]
     Indication: DYSMENORRHOEA

REACTIONS (2)
  - VOMITING [None]
  - ABDOMINAL PAIN UPPER [None]
